FAERS Safety Report 12519782 (Version 1)
Quarter: 2016Q2

REPORT INFORMATION
  Report Type: Spontaneous
  Country: US (occurrence: US)
  Receive Date: 20160630
  Receipt Date: 20160630
  Transmission Date: 20160815
  Serious: No
  Sender: FDA-Public Use
  Company Number: US-TRIS PHARMA, INC.-1054452

PATIENT
  Age: 55 Year
  Sex: Female
  Weight: 95.46 kg

DRUGS (4)
  1. ATENOLOL. [Concomitant]
     Active Substance: ATENOLOL
     Route: 048
  2. GENERIC TAMIFLU [Concomitant]
  3. DEXTROMETHORPHAN POLISTIREX ER OS 6 MG/ML [Suspect]
     Active Substance: DEXTROMETHORPHAN HYDROBROMIDE
     Indication: COUGH
     Dates: start: 20151017, end: 20151019
  4. LEVOTHYROXINE. [Concomitant]
     Active Substance: LEVOTHYROXINE
     Route: 048

REACTIONS (1)
  - Drug ineffective [None]

NARRATIVE: CASE EVENT DATE: 20151017
